FAERS Safety Report 5833564-1 (Version None)
Quarter: 2008Q3

REPORT INFORMATION
  Report Type: 
  Country: None (occurrence: None)
  Receive Date: 20080804
  Receipt Date: 20080804
  Transmission Date: 20090109
  Serious: Yes (Other)
  Sender: FDA-Public Use
  Company Number: None

PATIENT
  Age: 2 Year
  Sex: Female
  Weight: 12.2471 kg

DRUGS (2)
  1. C-PHEN [Suspect]
     Indication: BRONCHITIS
     Dosage: .25 TEASPOON 3X/DAY -6HR INTRVL PO
     Route: 048
     Dates: start: 20080630, end: 20080702
  2. ALBUTEROL [Suspect]
     Indication: BRONCHITIS
     Dosage: 3ML INHAL
     Route: 055
     Dates: start: 20080630, end: 20080704

REACTIONS (2)
  - DECREASED ACTIVITY [None]
  - FATIGUE [None]
